FAERS Safety Report 9772414 (Version 2)
Quarter: 2014Q1

REPORT INFORMATION
  Report Type: Spontaneous
  Country: US (occurrence: None)
  Receive Date: 20131217
  Receipt Date: 20140102
  Transmission Date: 20141002
  Serious: Yes (Hospitalization)
  Sender: FDA-Public Use
  Company Number: UTC-041491

PATIENT
  Age: 30 Year
  Sex: Female
  Weight: 68.2 kg

DRUGS (3)
  1. REMODULIN [Suspect]
     Indication: COR PULMONALE CHRONIC
     Dosage: 72 UG/KG (0.05 UG/KG, 1 IN 1 MIN), INTRAVENOUS DRIP
     Route: 041
     Dates: start: 20090225
  2. LETAIRIS (AMBRISENTAN) (TABLET) (AMBRISENTAN) [Suspect]
     Indication: COR PULMONALE CHRONIC
     Dates: start: 20110218
  3. ADCIRCA (TADALAFIL) [Concomitant]

REACTIONS (3)
  - Thrombosis in device [None]
  - Device occlusion [None]
  - Device malfunction [None]
